FAERS Safety Report 7286551-3 (Version None)
Quarter: 2011Q1

REPORT INFORMATION
  Report Type: 
  Country: None (occurrence: None)
  Receive Date: 20110210
  Receipt Date: 20110209
  Transmission Date: 20110831
  Serious: Yes (Other)
  Sender: FDA-Public Use
  Company Number: US-PFIZER INC-2011029358

PATIENT
  Age: 21 Year
  Sex: Female
  Weight: 70.2 kg

DRUGS (1)
  1. ADVIL [Suspect]
     Indication: HEADACHE
     Dosage: UNK
     Route: 048

REACTIONS (2)
  - OVERDOSE [None]
  - VOMITING [None]
